FAERS Safety Report 5531270-4 (Version None)
Quarter: 2007Q4

REPORT INFORMATION
  Report Type: 
  Country: None (occurrence: None)
  Receive Date: 20071127
  Receipt Date: 20071115
  Transmission Date: 20080405
  Serious: Yes (Death, Other)
  Sender: FDA-Public Use
  Company Number: 2007-03748

PATIENT
  Age: 71 Year
  Sex: Female
  Weight: 63 kg

DRUGS (8)
  1. VELCADE [Suspect]
     Indication: MULTIPLE MYELOMA
     Dosage: 1.30 MG/M2,
     Dates: start: 20061212, end: 20070109
  2. FUROSEMIDE [Concomitant]
  3. COZAAR [Concomitant]
  4. METOCLOPRAMIDE (METOCLOPRAMIDE) [Concomitant]
  5. SALCATONIN [Concomitant]
  6. SEVELAMER (SEVELAMER) [Concomitant]
  7. DEXTROMETHORPHAN HYDROBROMIDE [Concomitant]
  8. CODEINE SUL TAB [Concomitant]

REACTIONS (4)
  - CARDIAC ARREST [None]
  - CATHETER RELATED INFECTION [None]
  - PNEUMONIA [None]
  - SEPTIC SHOCK [None]
